FAERS Safety Report 19293275 (Version 1)
Quarter: 2021Q2

REPORT INFORMATION
  Report Type: Spontaneous
  Country: US (occurrence: US)
  Receive Date: 20210522
  Receipt Date: 20210522
  Transmission Date: 20210717
  Serious: Yes (Death, Hospitalization)
  Sender: FDA-Public Use
  Company Number: None

PATIENT
  Age: 86 Year
  Sex: Male

DRUGS (1)
  1. ABIRATERONE TAB 250MG [Suspect]
     Active Substance: ABIRATERONE
     Indication: PROSTATE CANCER
     Route: 048
     Dates: start: 20210303, end: 20210518

REACTIONS (6)
  - Hypernatraemia [None]
  - Constipation [None]
  - Therapy cessation [None]
  - Hypokalaemia [None]
  - Hypertension [None]
  - Adrenal insufficiency [None]

NARRATIVE: CASE EVENT DATE: 20210501
